FAERS Safety Report 8302027-6 (Version None)
Quarter: 2012Q2

REPORT INFORMATION
  Report Type: 
  Country: None (occurrence: None)
  Receive Date: 20120420
  Receipt Date: 20120416
  Transmission Date: 20120825
  Serious: Yes (Hospitalization, Disabling)
  Sender: FDA-Public Use
  Company Number: US-MERCK-1201USA00238

PATIENT
  Age: 56 Year
  Sex: Female
  Weight: 73 kg

DRUGS (7)
  1. CENTRUM (MINERALS (UNSPECIFIED) (+) VITAMINS (UNSPECIFIED)) [Concomitant]
     Dosage: TO PRESENT
     Route: 065
     Dates: start: 19970101
  2. CHOLECALCIFEROL [Concomitant]
     Dosage: TO PRESENT
     Route: 065
     Dates: start: 19970101
  3. CALCIUM (UNSPECIFIED) [Concomitant]
     Dosage: TO PRESENT
     Route: 048
     Dates: start: 19970101
  4. LYSINE [Concomitant]
     Dosage: TO PRESENT
     Route: 065
     Dates: start: 19970101
  5. VITAMIN B COMPLEX [Concomitant]
     Dosage: TO PRESENT
     Route: 065
     Dates: start: 19970101
  6. FOSAMAX [Suspect]
     Indication: OSTEOPOROSIS
     Route: 048
     Dates: start: 20040506, end: 20070401
  7. FOSAMAX PLUS D [Suspect]
     Indication: OSTEOPOROSIS
     Route: 048
     Dates: start: 20060401

REACTIONS (19)
  - HYPERTRIGLYCERIDAEMIA [None]
  - FALL [None]
  - FRACTURE [None]
  - MIGRAINE [None]
  - BLOOD CHOLESTEROL INCREASED [None]
  - DEPRESSION [None]
  - LOW TURNOVER OSTEOPATHY [None]
  - BALANCE DISORDER [None]
  - FEMUR FRACTURE [None]
  - ANXIETY [None]
  - GINGIVAL DISORDER [None]
  - ARTHRITIS [None]
  - BACK PAIN [None]
  - IMPAIRED HEALING [None]
  - SCOLIOSIS [None]
  - ORAL DISORDER [None]
  - CONSTIPATION [None]
  - ANAEMIA [None]
  - ROTATOR CUFF SYNDROME [None]
